FAERS Safety Report 9471415 (Version 1)
Quarter: 2013Q3

REPORT INFORMATION
  Report Type: Spontaneous
  Country: US (occurrence: US)
  Receive Date: 20130822
  Receipt Date: 20130822
  Transmission Date: 20140515
  Serious: Yes (Hospitalization)
  Sender: FDA-Public Use
  Company Number: US-B.I. PHARMACEUTICALS,INC./RIDGEFIELD-2013-BI-25085BP

PATIENT
  Age: 73 Year
  Sex: Female
  Weight: 51 kg

DRUGS (1)
  1. COMBIVENT [Suspect]
     Indication: CHRONIC OBSTRUCTIVE PULMONARY DISEASE
     Dosage: STRENGTH: 18 MCG / 103 MCG; DAILY DOSE: 144 MCG/824 MCG
     Route: 055
     Dates: start: 2002

REACTIONS (1)
  - Bronchitis [Recovered/Resolved with Sequelae]
